FAERS Safety Report 19889938 (Version 1)
Quarter: 2021Q3

REPORT INFORMATION
  Report Type: Spontaneous
  Country: US (occurrence: US)
  Receive Date: 20210928
  Receipt Date: 20210928
  Transmission Date: 20211014
  Serious: Yes (Hospitalization)
  Sender: FDA-Public Use
  Company Number: None

PATIENT
  Age: 17 Year
  Sex: Female
  Weight: 40.8 kg

DRUGS (4)
  1. ZINECARD [Suspect]
     Active Substance: DEXRAZOXANE HYDROCHLORIDE
     Dates: end: 20210626
  2. CISPLATIN. [Suspect]
     Active Substance: CISPLATIN
     Dates: end: 20210625
  3. NEXAVAR [Suspect]
     Active Substance: SORAFENIB
     Dates: end: 20210707
  4. DOXORUBICIN HYDROCHLORIDE. [Suspect]
     Active Substance: DOXORUBICIN HYDROCHLORIDE
     Dates: end: 20210626

REACTIONS (6)
  - Febrile neutropenia [None]
  - Nausea [None]
  - Pancytopenia [None]
  - Immunosuppression [None]
  - Liver abscess [None]
  - Vomiting [None]

NARRATIVE: CASE EVENT DATE: 20210706
